FAERS Safety Report 10841210 (Version 1)
Quarter: 2015Q1

REPORT INFORMATION
  Report Type: Spontaneous
  Country: FR (occurrence: FR)
  Receive Date: 20150220
  Receipt Date: 20150220
  Transmission Date: 20150721
  Serious: Yes (Other)
  Sender: FDA-Public Use
  Company Number: FR-ROCHE-1541156

PATIENT
  Age: 19 Year
  Sex: Female

DRUGS (3)
  1. PROKINYL [Suspect]
     Active Substance: METOCLOPRAMIDE HYDROCHLORIDE
     Indication: NAUSEA
     Route: 048
     Dates: start: 20141217, end: 20141221
  2. VALIUM [Suspect]
     Active Substance: DIAZEPAM
     Route: 030
     Dates: start: 20141221, end: 20141221
  3. VALIUM [Suspect]
     Active Substance: DIAZEPAM
     Indication: NAUSEA
     Route: 042
     Dates: start: 20141221, end: 20141221

REACTIONS (5)
  - Maternal exposure during pregnancy [Unknown]
  - Dysphagia [None]
  - Dyskinesia [None]
  - Torticollis [None]
  - Abortion spontaneous [Unknown]

NARRATIVE: CASE EVENT DATE: 201501
